FAERS Safety Report 8906688 (Version 1)
Quarter: 2012Q4

REPORT INFORMATION
  Report Type: 
  Country: KR (occurrence: KR)
  Receive Date: 20121114
  Receipt Date: 20121114
  Transmission Date: 20130627
  Serious: Yes (Other)
  Sender: FDA-Public Use
  Company Number: KR-009507513-1211KOR002187

PATIENT

DRUGS (1)
  1. BCG LIVE [Suspect]
     Indication: BLADDER CANCER
     Route: 043

REACTIONS (1)
  - Disease recurrence [Unknown]
